FAERS Safety Report 7454801-6 (Version None)
Quarter: 2011Q2

REPORT INFORMATION
  Report Type: 
  Country: None (occurrence: None)
  Receive Date: 20110503
  Receipt Date: 20100726
  Transmission Date: 20111010
  Serious: No
  Sender: FDA-Public Use
  Company Number: US-PFIZER INC-2010094130

PATIENT
  Sex: Female
  Weight: 69 kg

DRUGS (2)
  1. DEPO-PROVERA [Suspect]
     Indication: CONTRACEPTION
     Dosage: UNK
     Dates: start: 20100708
  2. SERTRALINE [Concomitant]
     Indication: DEPRESSION
     Dosage: UNK

REACTIONS (10)
  - METRORRHAGIA [None]
  - DIZZINESS [None]
  - VOMITING IN PREGNANCY [None]
  - ABDOMINAL DISTENSION [None]
  - DYSPEPSIA [None]
  - MIGRAINE [None]
  - OROPHARYNGEAL PAIN [None]
  - DECREASED APPETITE [None]
  - ABDOMINAL PAIN [None]
  - ABDOMINAL PAIN UPPER [None]
